FAERS Safety Report 5568176-0 (Version None)
Quarter: 2007Q4

REPORT INFORMATION
  Report Type: 
  Country: None (occurrence: None)
  Receive Date: 20071220
  Receipt Date: 20071210
  Transmission Date: 20080405
  Serious: Yes (Other)
  Sender: FDA-Public Use
  Company Number: US-BAYER-200714113BCC

PATIENT
  Age: 58 Year
  Sex: Male
  Weight: 136 kg

DRUGS (5)
  1. ALEVE [Suspect]
     Indication: BACK PAIN
     Dosage: UNIT DOSE: 220 MG
     Route: 048
     Dates: start: 20071101, end: 20071208
  2. ALEVE [Suspect]
     Dosage: UNIT DOSE: 220 MG
     Route: 048
     Dates: start: 20071209
  3. PLAVIX [Concomitant]
  4. MORPHINE [Concomitant]
  5. HIGH BLOOD PRESSURE MEDICATION [Concomitant]

REACTIONS (1)
  - BLOOD PRESSURE INCREASED [None]
